FAERS Safety Report 10208438 (Version 1)
Quarter: 2014Q2

REPORT INFORMATION
  Report Type: Spontaneous
  Country: US (occurrence: US)
  Receive Date: 20140530
  Receipt Date: 20140530
  Transmission Date: 20141212
  Serious: Yes (Death)
  Sender: FDA-Public Use
  Company Number: US-GLAXOSMITHKLINE-A1074352A

PATIENT
  Age: 68 Year
  Sex: Female

DRUGS (13)
  1. VOTRIENT [Suspect]
     Indication: NEOPLASM MALIGNANT
     Dosage: 4TAB PER DAY
     Route: 048
     Dates: start: 201401, end: 201404
  2. SYNTHROID [Concomitant]
  3. ATENOLOL [Concomitant]
  4. TRIAMTERENE [Concomitant]
  5. NEXIUM [Concomitant]
  6. CALCITRIOL [Concomitant]
  7. PREDNISONE [Concomitant]
  8. LORAZEPAM [Concomitant]
  9. TRAZODONE [Concomitant]
  10. CENTRUM SILVER MV [Concomitant]
  11. CALCIUM PLUS D [Concomitant]
  12. VITAMIN D [Concomitant]
  13. BABY ASPIRIN [Concomitant]

REACTIONS (2)
  - Death [Fatal]
  - Drug intolerance [Unknown]
